FAERS Safety Report 5694257-7 (Version None)
Quarter: 2008Q2

REPORT INFORMATION
  Report Type: 
  Country: None (occurrence: None)
  Receive Date: 20080404
  Receipt Date: 20080220
  Transmission Date: 20081010
  Serious: No
  Sender: FDA-Public Use
  Company Number: US-BAYER-200716611NA

PATIENT
  Age: 23 Year
  Sex: Female
  Weight: 67 kg

DRUGS (2)
  1. MIRENA [Suspect]
     Indication: CONTRACEPTION
     Route: 015
     Dates: start: 20070730
  2. IBUPROFEN [Concomitant]
     Indication: ANALGESIA

REACTIONS (4)
  - ABDOMINAL PAIN LOWER [None]
  - DYSPAREUNIA [None]
  - IUCD COMPLICATION [None]
  - PELVIC DISCOMFORT [None]
